FAERS Safety Report 6750561-2 (Version None)
Quarter: 2010Q2

REPORT INFORMATION
  Report Type: 
  Country: None (occurrence: None)
  Receive Date: 20100528
  Receipt Date: 20100528
  Transmission Date: 20101027
  Serious: Yes (Other)
  Sender: FDA-Public Use
  Company Number: None

PATIENT
  Age: 41 Year
  Sex: Male
  Weight: 63.5036 kg

DRUGS (1)
  1. TRAMADOL HCL [Suspect]
     Indication: PAIN
     Dosage: 1 EVERY 6 HOURS
     Dates: start: 20100520, end: 20100526

REACTIONS (8)
  - ABDOMINAL PAIN [None]
  - COUNTERFEIT DRUG ADMINISTERED [None]
  - FLATULENCE [None]
  - FLUSHING [None]
  - GASTROINTESTINAL SOUNDS ABNORMAL [None]
  - NAUSEA [None]
  - PRODUCT QUALITY ISSUE [None]
  - RECTAL TENESMUS [None]
